FAERS Safety Report 16165953 (Version 1)
Quarter: 2019Q2

REPORT INFORMATION
  Report Type: Spontaneous
  Country: CA (occurrence: CA)
  Receive Date: 20190406
  Receipt Date: 20190406
  Transmission Date: 20190711
  Serious: Yes (Other)
  Sender: FDA-Public Use
  Company Number: CA-ROCHE-2297994

PATIENT
  Sex: Male

DRUGS (7)
  1. GABAPENTIN. [Concomitant]
     Active Substance: GABAPENTIN
  2. ASA [Concomitant]
     Active Substance: ASPIRIN
  3. PANTOPRAZOL [Concomitant]
     Active Substance: PANTOPRAZOLE SODIUM
  4. CELLCEPT [Suspect]
     Active Substance: MYCOPHENOLATE MOFETIL\MYCOPHENOLATE MOFETIL HYDROCHLORIDE
     Indication: PULMONARY FIBROSIS
     Dosage: ONGOING
     Route: 065
     Dates: start: 2015
  5. DOMPERIDONE [Concomitant]
     Active Substance: DOMPERIDONE
  6. CARBOCAL [Concomitant]
     Active Substance: CALCIUM CARBONATE
  7. AMLODIPINE [Concomitant]
     Active Substance: AMLODIPINE BESYLATE

REACTIONS (2)
  - Drug ineffective [Unknown]
  - Pulmonary fibrosis [Unknown]
